FAERS Safety Report 8048369-3 (Version None)
Quarter: 2012Q1

REPORT INFORMATION
  Report Type: 
  Country: None (occurrence: None)
  Receive Date: 20120117
  Receipt Date: 20120110
  Transmission Date: 20120608
  Serious: No
  Sender: FDA-Public Use
  Company Number: US-PFIZER INC-2011012702

PATIENT
  Sex: Female
  Weight: 129 kg

DRUGS (2)
  1. CALAN [Suspect]
     Indication: HYPERTENSION
     Dosage: 120 MG, 1X/DAY
     Route: 048
  2. DIOVAN [Concomitant]
     Indication: HYPERTENSION
     Dosage: ONCE A DAY

REACTIONS (3)
  - DRUG HYPERSENSITIVITY [None]
  - BLOOD CHOLESTEROL INCREASED [None]
  - LABORATORY TEST ABNORMAL [None]
